FAERS Safety Report 9003455 (Version 1)
Quarter: 2013Q1

REPORT INFORMATION
  Report Type: Spontaneous
  Country: US (occurrence: US)
  Receive Date: 20130108
  Receipt Date: 20130108
  Transmission Date: 20140127
  Serious: Yes (Death, Hospitalization)
  Sender: FDA-Public Use
  Company Number: PHHY2013US001619

PATIENT
  Age: 56 Year
  Sex: Male

DRUGS (2)
  1. PREDNISONE [Suspect]
     Indication: LABYRINTHITIS
  2. MECLIZINE [Suspect]
     Indication: LABYRINTHITIS

REACTIONS (5)
  - Multi-organ failure [Fatal]
  - Candida infection [Unknown]
  - Pyrexia [Unknown]
  - Candiduria [Unknown]
  - Drug ineffective [Unknown]
